FAERS Safety Report 7626389-8 (Version None)
Quarter: 2011Q3

REPORT INFORMATION
  Report Type: 
  Country: None (occurrence: None)
  Receive Date: 20110721
  Receipt Date: 20110329
  Transmission Date: 20111222
  Serious: No
  Sender: FDA-Public Use
  Company Number: US-NOVEN-11US002151

PATIENT
  Sex: Male

DRUGS (1)
  1. FENTANYL [Suspect]
     Indication: PAIN
     Dosage: 75 UG, EVERY 48 HOURS
     Route: 062
     Dates: start: 20100101

REACTIONS (2)
  - APPLICATION SITE PAIN [None]
  - PRURITUS [None]
